FAERS Safety Report 10616064 (Version 2)
Quarter: 2016Q1

REPORT INFORMATION
  Report Type: Spontaneous
  Country: US (occurrence: US)
  Receive Date: 20141201
  Receipt Date: 20160302
  Transmission Date: 20160525
  Serious: No
  Sender: FDA-Public Use
  Company Number: US-RB-070609-14

PATIENT
  Age: 10 Year
  Sex: Female

DRUGS (1)
  1. MUCINEX [Suspect]
     Active Substance: GUAIFENESIN
     Indication: PRODUCT USED FOR UNKNOWN INDICATION
     Dosage: . CONSUMER WAS GIVEN HALF A DOSE OF PRODUCT,FREQUENCY UNK
     Route: 065

REACTIONS (1)
  - Epistaxis [Unknown]
